FAERS Safety Report 10697370 (Version 2)
Quarter: 2015Q1

REPORT INFORMATION
  Report Type: Spontaneous
  Country: DE (occurrence: DE)
  Receive Date: 20150108
  Receipt Date: 20150212
  Transmission Date: 20150721
  Serious: Yes (Other)
  Sender: FDA-Public Use
  Company Number: DE-ROCHE-1518606

PATIENT
  Age: 64 Year
  Sex: Female
  Weight: 63 kg

DRUGS (10)
  1. MABTHERA [Suspect]
     Active Substance: RITUXIMAB
     Indication: SPLENIC MARGINAL ZONE LYMPHOMA
     Dosage: 02-MAY-2014
     Route: 042
     Dates: start: 20131211, end: 20140502
  2. MABTHERA [Suspect]
     Active Substance: RITUXIMAB
     Dosage: FIFTH CYCLE
     Route: 042
     Dates: start: 20140404
  3. BENDAMUSTINA [Suspect]
     Active Substance: BENDAMUSTINE
     Indication: SPLENIC MARGINAL ZONE LYMPHOMA
     Dosage: 300 - 308 MG
     Route: 065
     Dates: start: 20131211, end: 20140502
  4. PANTOPRAZOLE [Concomitant]
     Active Substance: PANTOPRAZOLE SODIUM
     Route: 065
  5. MABTHERA [Suspect]
     Active Substance: RITUXIMAB
     Dosage: MAINTENANCE THERAPY
     Route: 042
     Dates: start: 20140624
  6. BENDAMUSTINA [Suspect]
     Active Substance: BENDAMUSTINE
     Dosage: FIFTH CYCLE
     Route: 065
     Dates: start: 20140404
  7. DECORTIN [Concomitant]
     Active Substance: PREDNISONE
     Route: 065
     Dates: start: 20140430, end: 20140430
  8. DOXYCYCLINE. [Concomitant]
     Active Substance: DOXYCYCLINE
  9. NOVALGIN [Concomitant]
     Active Substance: METAMIZOLE SODIUM
  10. IBUPROFEN. [Concomitant]
     Active Substance: IBUPROFEN

REACTIONS (9)
  - Cataract [Not Recovered/Not Resolved]
  - Infusion related reaction [Recovered/Resolved]
  - Pain in extremity [Recovered/Resolved]
  - Dermatitis allergic [Not Recovered/Not Resolved]
  - Thrombocytopenia [Recovered/Resolved]
  - Nervous system disorder [Recovered/Resolved]
  - Headache [Recovered/Resolved]
  - Night sweats [Not Recovered/Not Resolved]
  - Folliculitis [Unknown]

NARRATIVE: CASE EVENT DATE: 20131211
